FAERS Safety Report 9005413 (Version 1)
Quarter: 2013Q1

REPORT INFORMATION
  Report Type: Spontaneous
  Country: US (occurrence: US)
  Receive Date: 20130108
  Receipt Date: 20130108
  Transmission Date: 20140127
  Serious: Yes (Hospitalization)
  Sender: FDA-Public Use
  Company Number: US-INCYTE CORPORATION-2012IN002424

PATIENT
  Age: 78 Year
  Sex: Female

DRUGS (2)
  1. JAKAFI [Suspect]
     Dosage: 15 MG, BID
     Route: 048
     Dates: start: 20121105, end: 20121217
  2. JAKAFI [Suspect]
     Dosage: UNSPECIFIED
     Dates: start: 20121226

REACTIONS (5)
  - Chest pain [Unknown]
  - Malaise [Unknown]
  - Haemoglobin decreased [Unknown]
  - Platelet count decreased [Unknown]
  - Headache [Unknown]
